FAERS Safety Report 7773240-1 (Version None)
Quarter: 2011Q3

REPORT INFORMATION
  Report Type: 
  Country: None (occurrence: None)
  Receive Date: 20110922
  Receipt Date: 20110914
  Transmission Date: 20111222
  Serious: Yes (Other)
  Sender: FDA-Public Use
  Company Number: US-US-EMD SERONO, INC.-7062297

PATIENT
  Sex: Male
  Weight: 78 kg

DRUGS (5)
  1. LAMICTAL [Concomitant]
     Indication: EPILEPSY
  2. REBIF [Suspect]
     Indication: RELAPSING-REMITTING MULTIPLE SCLEROSIS
     Route: 058
     Dates: start: 20100218, end: 20110601
  3. REBIF [Suspect]
     Dates: start: 20110701
  4. ALBERTSONS ASPRIRIN [Concomitant]
  5. KEPPRA [Concomitant]
     Indication: EPILEPSY

REACTIONS (7)
  - ARTHROPATHY [None]
  - INJECTION SITE PAIN [None]
  - INFLUENZA LIKE ILLNESS [None]
  - INSOMNIA [None]
  - ORTHOSTATIC INTOLERANCE [None]
  - VENOUS STENOSIS [None]
  - CONVULSION [None]
